FAERS Safety Report 8840511 (Version 3)
Quarter: 2015Q3

REPORT INFORMATION
  Report Type: Report from Study
  Country: US (occurrence: US)
  Receive Date: 20121015
  Receipt Date: 20150811
  Transmission Date: 20151125
  Serious: Yes (Other)
  Sender: FDA-Public Use
  Company Number: US-ROCHE-1127401

PATIENT
  Age: 9 Year
  Sex: Male
  Weight: 27.7 kg

DRUGS (13)
  1. NUTROPIN AQ [Suspect]
     Active Substance: SOMATROPIN
     Indication: CHRONIC KIDNEY DISEASE
     Dosage: 0.24 CC
     Route: 058
  2. FERROUS GLUCONATE [Concomitant]
     Active Substance: FERROUS GLUCONATE
     Route: 048
  3. NUTROPIN AQ [Suspect]
     Active Substance: SOMATROPIN
     Indication: FOCAL SEGMENTAL GLOMERULOSCLEROSIS
     Route: 058
     Dates: end: 20040504
  4. MONOPRIL [Concomitant]
     Active Substance: FOSINOPRIL SODIUM
     Route: 065
  5. MEVACOR [Concomitant]
     Active Substance: LOVASTATIN
     Dosage: 1/2 PER DAY
     Route: 048
  6. NUTROPIN AQ [Suspect]
     Active Substance: SOMATROPIN
     Indication: GROWTH RETARDATION
     Route: 058
  7. DYNACIRC [Concomitant]
     Active Substance: ISRADIPINE
     Route: 065
  8. ROCALTROL [Concomitant]
     Active Substance: CALCITRIOL
     Route: 048
  9. EPOGEN [Concomitant]
     Active Substance: ERYTHROPOIETIN
     Route: 065
  10. LOSARTAN. [Concomitant]
     Active Substance: LOSARTAN
  11. NEPHRO-VITE [Concomitant]
     Route: 065
  12. RENAGEL [Concomitant]
     Active Substance: SEVELAMER HYDROCHLORIDE
     Route: 048
  13. CALCIUM CARBONATE. [Concomitant]
     Active Substance: CALCIUM CARBONATE
     Route: 048

REACTIONS (3)
  - Ocular vascular disorder [Unknown]
  - Cardiac murmur [Recovered/Resolved]
  - Anaemia [Unknown]

NARRATIVE: CASE EVENT DATE: 20000316
